FAERS Safety Report 20796400 (Version 3)
Quarter: 2022Q3

REPORT INFORMATION
  Report Type: Report from Study
  Country: DO (occurrence: DO)
  Receive Date: 20220506
  Receipt Date: 20220715
  Transmission Date: 20221026
  Serious: Yes (Other)
  Sender: FDA-Public Use
  Company Number: DO-NOVARTISPH-NVSC2021DO059010

PATIENT
  Age: 51 Year
  Sex: Female

DRUGS (4)
  1. KISQALI [Suspect]
     Active Substance: RIBOCICLIB
     Indication: Breast cancer
     Dosage: 600 MG, QD
     Route: 048
     Dates: start: 20201112, end: 20201202
  2. KISQALI [Suspect]
     Active Substance: RIBOCICLIB
     Dosage: 600 MG, QD
     Route: 048
     Dates: start: 20210406
  3. KISQALI [Suspect]
     Active Substance: RIBOCICLIB
     Dosage: 600 MG, QD
     Route: 048
     Dates: start: 20211007
  4. FEMARA [Suspect]
     Active Substance: LETROZOLE
     Indication: Product used for unknown indication
     Dosage: 1 DF, QD
     Route: 065

REACTIONS (21)
  - Asphyxia [Unknown]
  - Metastases to liver [Unknown]
  - Hepatitis [Not Recovered/Not Resolved]
  - Lung disorder [Unknown]
  - Amnesia [Unknown]
  - Abdominal discomfort [Unknown]
  - Gait disturbance [Unknown]
  - Bone disorder [Unknown]
  - Coronavirus infection [Unknown]
  - Pain [Unknown]
  - Hypersensitivity [Unknown]
  - Skin discolouration [Unknown]
  - Cough [Unknown]
  - Dry skin [Unknown]
  - Headache [Unknown]
  - Dizziness [Unknown]
  - Vomiting [Unknown]
  - Pyrexia [Unknown]
  - Fall [Not Recovered/Not Resolved]
  - Joint injury [Not Recovered/Not Resolved]
  - Asthenia [Not Recovered/Not Resolved]

NARRATIVE: CASE EVENT DATE: 20201203
